FAERS Safety Report 9028516 (Version 2)
Quarter: 2013Q1

REPORT INFORMATION
  Report Type: Spontaneous
  Country: DE (occurrence: DE)
  Receive Date: 20130124
  Receipt Date: 20130304
  Transmission Date: 20140127
  Serious: Yes (Other)
  Sender: FDA-Public Use
  Company Number: DE-JNJFOC-20130111103

PATIENT
  Sex: Female
  Weight: 79 kg

DRUGS (2)
  1. XARELTO [Suspect]
     Indication: DEEP VEIN THROMBOSIS
     Route: 048
     Dates: start: 201112, end: 20121014
  2. XARELTO [Suspect]
     Indication: PULMONARY EMBOLISM
     Route: 048
     Dates: start: 201112, end: 20121014

REACTIONS (3)
  - Abortion [Unknown]
  - Exposure during pregnancy [Unknown]
  - Off label use [Unknown]
